FAERS Safety Report 9332368 (Version 2)
Quarter: 2013Q2

REPORT INFORMATION
  Report Type: Spontaneous
  Country: FR (occurrence: FR)
  Receive Date: 20130606
  Receipt Date: 20130620
  Transmission Date: 20140414
  Serious: Yes (Hospitalization, Disabling)
  Sender: FDA-Public Use
  Company Number: PHHY2013FR056081

PATIENT
  Age: 43 Year
  Sex: Female
  Weight: 80 kg

DRUGS (6)
  1. GILENYA [Suspect]
     Indication: RELAPSING-REMITTING MULTIPLE SCLEROSIS
     Dosage: 0.5 MG, QD
     Route: 048
     Dates: start: 20120426, end: 20130522
  2. DEPAKINE CHRONO [Concomitant]
     Indication: EPILEPSY
     Dosage: 2 DF, QD
     Route: 048
     Dates: start: 2001
  3. APIDRA [Concomitant]
     Indication: BLOOD GLUCOSE ABNORMAL
     Route: 058
  4. APROVEL [Concomitant]
     Dosage: 375 MG, QD
     Route: 048
     Dates: start: 20130522
  5. AMLOR [Concomitant]
     Route: 048
  6. ACEBUTOLOL [Concomitant]
     Route: 048

REACTIONS (4)
  - Lymphoedema [Not Recovered/Not Resolved]
  - Pain [Unknown]
  - Gait disturbance [Recovering/Resolving]
  - Proteinuria [Unknown]
